FAERS Safety Report 4548915-8 (Version None)
Quarter: 2004Q4

REPORT INFORMATION
  Report Type: 
  Country: None (occurrence: None)
  Receive Date: 20041227
  Receipt Date: 20041006
  Transmission Date: 20050328
  Serious: No
  Sender: FDA-Public Use
  Company Number: 04P-163-0276375-00

PATIENT
  Age: 61 Year
  Sex: Female
  Weight: 83.9154 kg

DRUGS (15)
  1. HUMIRA [Suspect]
     Dosage: SEE IMAGE
     Route: 058
     Dates: start: 20040301, end: 20040701
  2. HUMIRA [Suspect]
     Dosage: SEE IMAGE
     Route: 058
     Dates: start: 20040701, end: 20040801
  3. HUMIRA [Suspect]
     Dosage: SEE IMAGE
     Route: 058
     Dates: start: 20040801
  4. CELECOXIB [Concomitant]
  5. ESOMEPRAZOLE [Concomitant]
  6. PREDNISONE [Concomitant]
  7. METHOTREXATE SODIUM [Concomitant]
  8. PROCHLORPERAZINE EDISYLATE [Concomitant]
  9. FOLIC ACID [Concomitant]
  10. LEVOTHROID [Concomitant]
  11. TOCOPHEROL CONCENTRATE CAP [Concomitant]
  12. VENLAFAXINE HCL [Concomitant]
  13. ASCORBIC ACID [Concomitant]
  14. ALENDRONATE SODIUM [Concomitant]
  15. DEXTROPROPOXYPHENE [Concomitant]

REACTIONS (3)
  - DRUG EFFECT DECREASED [None]
  - FATIGUE [None]
  - INJECTION SITE BURNING [None]
